FAERS Safety Report 22280316 (Version 1)
Quarter: 2023Q2

REPORT INFORMATION
  Report Type: Spontaneous
  Country: CN (occurrence: CN)
  Receive Date: 20230503
  Receipt Date: 20230503
  Transmission Date: 20230721
  Serious: Yes (Hospitalization, Disabling, Other)
  Sender: FDA-Public Use
  Company Number: CN-009507513-2305CHN000657

PATIENT
  Age: 69 Year
  Sex: Female
  Weight: 56 kg

DRUGS (4)
  1. KEYTRUDA [Suspect]
     Active Substance: PEMBROLIZUMAB
     Indication: Sarcomatoid carcinoma of the lung
     Dosage: 200 MILLIGRAM, ONCE
     Route: 041
     Dates: start: 20230306, end: 20230306
  2. PACLITAXEL [Suspect]
     Active Substance: PACLITAXEL
     Indication: Sarcomatoid carcinoma of the lung
     Dosage: 0.3 GRAM, ONCE
     Route: 041
     Dates: start: 20230306, end: 20230306
  3. SODIUM CHLORIDE [Concomitant]
     Active Substance: SODIUM CHLORIDE
     Indication: Medication dilution
     Dosage: 200 MILLILITER, ONCE
     Route: 041
     Dates: start: 20230306, end: 20230306
  4. SODIUM CHLORIDE [Concomitant]
     Active Substance: SODIUM CHLORIDE
     Dosage: 100 MILLILITER, ONCE
     Route: 041
     Dates: start: 20230306, end: 20230306

REACTIONS (1)
  - Neuropathy peripheral [Not Recovered/Not Resolved]

NARRATIVE: CASE EVENT DATE: 20230320
